FAERS Safety Report 12485164 (Version 1)
Quarter: 2016Q2

REPORT INFORMATION
  Report Type: Spontaneous
  Country: US (occurrence: US)
  Receive Date: 20160621
  Receipt Date: 20160621
  Transmission Date: 20160815
  Serious: No
  Sender: FDA-Public Use
  Company Number: US-ACTELION-A-US2016-137647

PATIENT
  Age: 2 Year
  Sex: Female

DRUGS (3)
  1. POLY-VI-SOL [Concomitant]
     Dosage: 1 DOSE AS DIRECTED
     Dates: start: 20150921
  2. SENNA S [Concomitant]
     Active Substance: DOCUSATE SODIUM\SENNA LEAF
     Dosage: 2 TABS AS DIRECTED
     Dates: start: 20150921
  3. ZAVESCA [Suspect]
     Active Substance: MIGLUSTAT
     Indication: PRODUCT USED FOR UNKNOWN INDICATION
     Dosage: 100 MG, UNK
     Route: 048
     Dates: start: 20150921

REACTIONS (1)
  - Pyrexia [Unknown]
